FAERS Safety Report 7001523-1 (Version None)
Quarter: 2010Q3

REPORT INFORMATION
  Report Type: 
  Country: None (occurrence: None)
  Receive Date: 20100916
  Receipt Date: 20100908
  Transmission Date: 20110219
  Serious: Yes (Other)
  Sender: FDA-Public Use
  Company Number: TRP_07243_2010

PATIENT
  Sex: Male

DRUGS (2)
  1. RIBAVARIN [Suspect]
     Indication: PRODUCT USED FOR UNKNOWN INDICATION
     Dosage: (DF)
     Dates: start: 20050101
  2. PLAN B [Concomitant]

REACTIONS (3)
  - HOMICIDAL IDEATION [None]
  - MATERNAL DRUGS AFFECTING FOETUS [None]
  - UNEVALUABLE EVENT [None]
